FAERS Safety Report 16859845 (Version 1)
Quarter: 2019Q4

REPORT INFORMATION
  Report Type: Spontaneous
  Country: US (occurrence: US)
  Receive Date: 20190926
  Receipt Date: 20190926
  Transmission Date: 20200122
  Serious: No
  Sender: FDA-Public Use
  Company Number: None

PATIENT
  Age: 87 Year
  Sex: Male

DRUGS (4)
  1. ESCITALOPRAM 10MG [Concomitant]
     Active Substance: ESCITALOPRAM OXALATE
  2. OMEPRAZOLE 20MG [Concomitant]
     Active Substance: OMEPRAZOLE
  3. CLOPIDOGREL [Suspect]
     Active Substance: CLOPIDOGREL BISULFATE
     Route: 048
  4. GABAPENTIN 300MG [Concomitant]
     Active Substance: GABAPENTIN

REACTIONS (2)
  - Product substitution issue [None]
  - Throat irritation [None]

NARRATIVE: CASE EVENT DATE: 20190619
